FAERS Safety Report 8497182-1 (Version None)
Quarter: 2012Q3

REPORT INFORMATION
  Report Type: 
  Country: None (occurrence: None)
  Receive Date: 20120709
  Receipt Date: 20120607
  Transmission Date: 20120928
  Serious: No
  Sender: FDA-Public Use
  Company Number: US-AMGEN-USASP2011048831

PATIENT
  Age: 58 Year
  Sex: Female
  Weight: 117.9 kg

DRUGS (1)
  1. ENBREL [Suspect]
     Indication: RHEUMATOID ARTHRITIS
     Dosage: 50 MG, QWK
     Route: 058
     Dates: start: 20110622

REACTIONS (2)
  - DIARRHOEA [None]
  - INFLUENZA LIKE ILLNESS [None]
